FAERS Safety Report 23186147 (Version 1)
Quarter: 2023Q4

REPORT INFORMATION
  Report Type: Spontaneous
  Country: US (occurrence: US)
  Receive Date: 20231115
  Receipt Date: 20231115
  Transmission Date: 20240110
  Serious: Yes (Other)
  Sender: FDA-Public Use
  Company Number: US-HIKMA PHARMACEUTICALS USA INC.-US-H14001-23-66703

PATIENT
  Sex: Male

DRUGS (5)
  1. DEXMEDETOMIDINE [Suspect]
     Active Substance: DEXMEDETOMIDINE
     Dosage: 1 MCG/KG PER HOUR
     Route: 065
  2. DEXMEDETOMIDINE [Suspect]
     Active Substance: DEXMEDETOMIDINE
     Indication: Sedative therapy
     Dosage: 1.3 MCG/KG PER HOUR
     Route: 065
  3. LORAZEPAM [Suspect]
     Active Substance: LORAZEPAM
     Indication: Sedative therapy
     Dosage: BOLUSES AS NEEDED
     Route: 065
  4. MIDAZOLAM [Suspect]
     Active Substance: MIDAZOLAM
     Indication: Sedative therapy
     Dosage: BOLUSES AS NEEDED
     Route: 065
  5. PROPOFOL [Suspect]
     Active Substance: PROPOFOL
     Indication: Sedative therapy
     Dosage: AS HIGH AS 80 MCG/KG PER MINUTE
     Route: 065

REACTIONS (7)
  - Acute myocardial infarction [Unknown]
  - Withdrawal syndrome [Unknown]
  - Angina pectoris [Unknown]
  - Hyperhidrosis [Unknown]
  - Tachycardia [Unknown]
  - Tachypnoea [Unknown]
  - Hypoxia [Unknown]
